FAERS Safety Report 9729251 (Version 1)
Quarter: 2013Q4

REPORT INFORMATION
  Report Type: Report from Study
  Country: US (occurrence: US)
  Receive Date: 20131204
  Receipt Date: 20131204
  Transmission Date: 20140711
  Serious: Yes (Hospitalization, Other)
  Sender: FDA-Public Use
  Company Number: US-SA-2013SA123651

PATIENT
  Age: 53 Year
  Sex: Male
  Weight: 101.6 kg

DRUGS (17)
  1. PLERIXAFOR [Suspect]
     Indication: HAEMATOPOIETIC STEM CELL MOBILISATION
     Route: 042
     Dates: start: 20131101, end: 20131101
  2. SARGRAMOSTIM [Suspect]
     Indication: HAEMATOPOIETIC STEM CELL MOBILISATION
     Route: 042
     Dates: start: 20131101, end: 20131101
  3. ACETAMINOPHEN [Concomitant]
     Dosage: 1-2 TABLETS EVERY 4 HOURS AS NEEEDED
     Route: 048
     Dates: start: 20121219
  4. ACYCLOVIR [Concomitant]
     Route: 048
  5. AMBISOME [Concomitant]
     Dosage: 50 MG INTRAVENOUS SUSPECSION RECONSTITUTED 5 MG/KG
     Route: 041
     Dates: start: 20131122
  6. DAPSONE [Concomitant]
     Route: 048
     Dates: start: 20131119
  7. DARAPRIM [Concomitant]
     Route: 048
     Dates: start: 20131119
  8. FAMOTIDINE [Concomitant]
     Route: 048
  9. LEUCOVORIN CALCIUM [Concomitant]
     Dosage: 1 TAB BY MOUTH ONCE A WEEK
     Route: 048
     Dates: start: 20131119
  10. LEVETIRACETAM [Concomitant]
     Route: 048
  11. LISINOPRIL [Concomitant]
     Route: 048
     Dates: start: 20131003
  12. METOPROLOL TARTRATE [Concomitant]
     Route: 048
     Dates: start: 20130127
  13. PREDNISONE [Concomitant]
     Dosage: 3 TABLETS DAILY IN AM
     Route: 048
     Dates: start: 20131122
  14. PREDNISONE [Concomitant]
     Dosage: DOSE:60 UNIT(S)
     Route: 065
     Dates: start: 20131126
  15. PROCHLORPERAZINE MALEATE [Concomitant]
     Indication: NAUSEA
     Dosage: 1 TABLET EVERY 6 HOURS AS NEEDED
     Route: 048
     Dates: start: 20121205
  16. TACROLIMUS [Concomitant]
     Dosage: 2 CAPSULES TWICE A DAY
     Route: 048
  17. TRIAMCINOLONE ACETONIDE [Concomitant]
     Dosage: 0.1 % ECTERNAL CREAM, APPLY AND RUB IN A THIN FILM TO AFFECTED AREAS TWICE DAILY
     Dates: start: 20131119

REACTIONS (4)
  - Chills [Unknown]
  - Chest pain [Unknown]
  - Back pain [Unknown]
  - Graft versus host disease [Unknown]
